FAERS Safety Report 5165595-1 (Version None)
Quarter: 2006Q4

REPORT INFORMATION
  Report Type: 
  Country: None (occurrence: None)
  Receive Date: 20061206
  Receipt Date: 20061130
  Transmission Date: 20070319
  Serious: Yes (Other)
  Sender: FDA-Public Use
  Company Number: JP-GLAXOSMITHKLINE-B0449300A

PATIENT
  Age: 40 Year
  Sex: Male

DRUGS (1)
  1. ZEFIX [Suspect]
     Indication: HEPATITIS
     Dosage: 50MG PER DAY
     Route: 048
     Dates: start: 20040101

REACTIONS (1)
  - BLOOD AMYLASE INCREASED [None]
